FAERS Safety Report 10911239 (Version 1)
Quarter: 2015Q1

REPORT INFORMATION
  Report Type: Report from Study
  Country: DE (occurrence: DE)
  Receive Date: 20150312
  Receipt Date: 20150312
  Transmission Date: 20150721
  Serious: Yes (Hospitalization)
  Sender: FDA-Public Use
  Company Number: DE-ABBVIE-15K-062-1357830-00

PATIENT
  Sex: Female

DRUGS (1)
  1. HUMIRA [Suspect]
     Active Substance: ADALIMUMAB
     Indication: RHEUMATOID ARTHRITIS
     Dosage: THERAPY-PAUSE
     Route: 058
     Dates: start: 20130801, end: 201502

REACTIONS (3)
  - Uterine haemorrhage [Recovering/Resolving]
  - Uterine leiomyoma [Recovering/Resolving]
  - Uterine pain [Recovering/Resolving]
